FAERS Safety Report 24271833 (Version 1)
Quarter: 2024Q3

REPORT INFORMATION
  Report Type: Spontaneous
  Country: US (occurrence: US)
  Receive Date: 20240902
  Receipt Date: 20240902
  Transmission Date: 20241016
  Serious: No
  Sender: AMGEN
  Company Number: US-AMGEN-USASP2024173219

PATIENT
  Age: 36 Year
  Sex: Female

DRUGS (4)
  1. AIMOVIG [Suspect]
     Active Substance: ERENUMAB-AOOE
     Indication: Migraine prophylaxis
     Dosage: 140 MILLIGRAM, QMO
     Route: 058
     Dates: start: 202403, end: 202408
  2. ZOFRAN [Concomitant]
     Active Substance: ONDANSETRON HYDROCHLORIDE
  3. RIZATRIPTAN [Concomitant]
     Active Substance: RIZATRIPTAN
  4. ZOLMITRIPTAN [Concomitant]
     Active Substance: ZOLMITRIPTAN

REACTIONS (4)
  - Drug intolerance [Unknown]
  - Lymphadenopathy [Unknown]
  - Arthralgia [Unknown]
  - Mass [Unknown]

NARRATIVE: CASE EVENT DATE: 20240101
